FAERS Safety Report 20700655 (Version 1)
Quarter: 2022Q2

REPORT INFORMATION
  Report Type: Spontaneous
  Country: AR (occurrence: AR)
  Receive Date: 20220412
  Receipt Date: 20220412
  Transmission Date: 20220721
  Serious: Yes (Other)
  Sender: FDA-Public Use
  Company Number: AR-PFIZER INC-202200511158

PATIENT
  Age: 74 Year
  Sex: Female

DRUGS (2)
  1. IBRANCE [Suspect]
     Active Substance: PALBOCICLIB
     Indication: Breast cancer metastatic
     Dosage: 75 MG, DAILY, SCHEME 3X1
     Dates: start: 20181018
  2. LETROZOLE [Suspect]
     Active Substance: LETROZOLE
     Dosage: UNK

REACTIONS (2)
  - Alopecia [Unknown]
  - Arthralgia [Unknown]
